FAERS Safety Report 12797684 (Version 1)
Quarter: 2016Q3

REPORT INFORMATION
  Report Type: Spontaneous
  Country: US (occurrence: US)
  Receive Date: 20160929
  Receipt Date: 20160929
  Transmission Date: 20161109
  Serious: No
  Sender: FDA-Public Use
  Company Number: None

PATIENT
  Age: 36 Year

DRUGS (1)
  1. DEPO-PROVERA [Suspect]
     Active Substance: MEDROXYPROGESTERONE ACETATE
     Dosage: ?          QUANTITY:THING?.I N I. .\.;?

REACTIONS (3)
  - Constipation [None]
  - Asthenia [None]
  - Alopecia [None]

NARRATIVE: CASE EVENT DATE: 20160325
